FAERS Safety Report 14744974 (Version 3)
Quarter: 2018Q2

REPORT INFORMATION
  Report Type: Spontaneous
  Country: US (occurrence: US)
  Receive Date: 20180411
  Receipt Date: 20180530
  Transmission Date: 20180711
  Serious: No
  Sender: FDA-Public Use
  Company Number: US-PFIZER INC-2018146199

PATIENT
  Age: 83 Year
  Sex: Female
  Weight: 77 kg

DRUGS (8)
  1. CRESTOR [Concomitant]
     Active Substance: ROSUVASTATIN CALCIUM
     Indication: BLOOD CHOLESTEROL INCREASED
     Dosage: 20 MG, 1X/DAY (AT NIGHT)
  2. JANUVIA [Concomitant]
     Active Substance: SITAGLIPTIN PHOSPHATE
     Indication: DIABETES MELLITUS
     Dosage: 100 MG, 1X/DAY (IN THE MORNING)
  3. IBRANCE [Suspect]
     Active Substance: PALBOCICLIB
     Indication: BREAST CANCER METASTATIC
     Dosage: 125 MG, CYCLIC (ONCE DAILY FOR 21 DAYS THEN OFF FOR 7 DAYS)
  4. ZETIA [Concomitant]
     Active Substance: EZETIMIBE
     Indication: BLOOD CHOLESTEROL INCREASED
     Dosage: 10 MG, 1X/DAY (AT NIGHT)
  5. CLONAZEPAM. [Concomitant]
     Active Substance: CLONAZEPAM
     Indication: PANIC DISORDER
  6. FULVESTRANT. [Concomitant]
     Active Substance: FULVESTRANT
     Indication: BREAST CANCER METASTATIC
     Dosage: UNK, MONTHLY (ONCE A MONTH)
  7. DEXILANT [Concomitant]
     Active Substance: DEXLANSOPRAZOLE
     Indication: GASTROOESOPHAGEAL REFLUX DISEASE
     Dosage: 60 MG, 1X/DAY (IN THE MORNING)
  8. CLONAZEPAM. [Concomitant]
     Active Substance: CLONAZEPAM
     Indication: SLEEP DISORDER
     Dosage: 1.5 MG, 1X/DAY (AT NIGHT)

REACTIONS (18)
  - Feeling abnormal [Unknown]
  - Gastric disorder [Not Recovered/Not Resolved]
  - Depression [Recovering/Resolving]
  - Joint swelling [Unknown]
  - Cough [Unknown]
  - Appetite disorder [Not Recovered/Not Resolved]
  - Diarrhoea [Unknown]
  - Constipation [Not Recovered/Not Resolved]
  - Fatigue [Not Recovered/Not Resolved]
  - Insomnia [Not Recovered/Not Resolved]
  - Oedema peripheral [Unknown]
  - Abdominal discomfort [Unknown]
  - Abdominal pain upper [Not Recovered/Not Resolved]
  - Irritable bowel syndrome [Not Recovered/Not Resolved]
  - Alopecia [Not Recovered/Not Resolved]
  - Swelling face [Unknown]
  - Weight loss poor [Not Recovered/Not Resolved]
  - Nasopharyngitis [Unknown]

NARRATIVE: CASE EVENT DATE: 201801
